FAERS Safety Report 6435481-5 (Version None)
Quarter: 2009Q4

REPORT INFORMATION
  Report Type: 
  Country: None (occurrence: None)
  Receive Date: 20091110
  Receipt Date: 20091029
  Transmission Date: 20100525
  Serious: Yes (Hospitalization)
  Sender: FDA-Public Use
  Company Number: US-ELI_LILLY_AND_COMPANY-US200910000144

PATIENT
  Sex: Female

DRUGS (11)
  1. FORTEO [Suspect]
     Indication: OSTEOPOROSIS
     Dosage: 20 UG, DAILY (1/D)
     Dates: start: 20090101, end: 20090929
  2. NEXIUM [Concomitant]
     Dosage: 40 MG, 2/D
  3. METOPROLOL [Concomitant]
     Dosage: 100 MG, DAILY (1/D)
  4. TRICOR [Concomitant]
     Dosage: 145 MG, DAILY (1/D)
  5. LIPITOR [Concomitant]
     Dosage: 10 MG, EACH EVENING
  6. SYNTHROID [Concomitant]
     Dosage: 150 UG, DAILY (1/D)
  7. ZETIA [Concomitant]
     Dosage: 10 MG, DAILY (1/D)
  8. GLIPIZIDE [Concomitant]
     Dosage: 5 MG, UNK
  9. NIFEDIPINE [Concomitant]
     Dosage: 90 MG, DAILY (1/D)
  10. ENALAPRIL [Concomitant]
     Dosage: 5 MG, 2/D
  11. DICLOFENAC [Concomitant]
     Dosage: 75 MG, UNK

REACTIONS (8)
  - ABDOMINAL PAIN UPPER [None]
  - DYSPNOEA [None]
  - FEELING ABNORMAL [None]
  - HEART RATE INCREASED [None]
  - NAUSEA [None]
  - PALPITATIONS [None]
  - TACHYCARDIA [None]
  - VOMITING [None]
